FAERS Safety Report 9450676 (Version 3)
Quarter: 2013Q3

REPORT INFORMATION
  Report Type: Report from Study
  Country: NL (occurrence: NL)
  Receive Date: 20130809
  Receipt Date: 20130911
  Transmission Date: 20140515
  Serious: Yes (Other)
  Sender: FDA-Public Use
  Company Number: NL-BAXTER-2013BAX031290

PATIENT
  Sex: Female

DRUGS (4)
  1. SUBCUVIA 160 MG/ML, OPLOSSING VOOR INJECTIE [Suspect]
     Indication: COMBINED IMMUNODEFICIENCY
     Route: 058
     Dates: start: 20130521
  2. SUBCUVIA 160 MG/ML, OPLOSSING VOOR INJECTIE [Suspect]
     Route: 058
     Dates: start: 20130617
  3. SUBCUVIA 160 MG/ML, OPLOSSING VOOR INJECTIE [Suspect]
     Route: 058
     Dates: start: 20130624
  4. SUBCUVIA 160 MG/ML, OPLOSSING VOOR INJECTIE [Suspect]
     Route: 058
     Dates: end: 20130730

REACTIONS (3)
  - Drug effect decreased [Unknown]
  - Infection [Unknown]
  - Growth retardation [Unknown]
